FAERS Safety Report 6986480-6 (Version None)
Quarter: 2010Q3

REPORT INFORMATION
  Report Type: 
  Country: None (occurrence: None)
  Receive Date: 20100915
  Receipt Date: 20090713
  Transmission Date: 20110219
  Serious: No
  Sender: FDA-Public Use
  Company Number: US-WYE-H10120609

PATIENT
  Sex: Female
  Weight: 48.58 kg

DRUGS (3)
  1. PRISTIQ [Suspect]
     Indication: DEPRESSION
     Dosage: UNKNOWN
     Route: 048
     Dates: start: 20090401, end: 20090601
  2. PRISTIQ [Suspect]
     Dosage: ^1/2 TABLET DAILY^ PER HER PHYSICIAN
     Dates: start: 20090601, end: 20090601
  3. PRISTIQ [Suspect]
     Dosage: ^1/4 TABLET^ PER HER PHYSICIAN
     Dates: start: 20090601, end: 20090708

REACTIONS (4)
  - DIARRHOEA [None]
  - DRUG WITHDRAWAL SYNDROME [None]
  - LIBIDO DECREASED [None]
  - TINNITUS [None]
